FAERS Safety Report 8193487-2 (Version None)
Quarter: 2012Q1

REPORT INFORMATION
  Report Type: 
  Country: None (occurrence: None)
  Receive Date: 20120308
  Receipt Date: 20120302
  Transmission Date: 20120608
  Serious: Yes (Death, Other)
  Sender: FDA-Public Use
  Company Number: US-CELGENEUS-163-21880-12030377

PATIENT
  Age: 60 Year
  Sex: Male

DRUGS (14)
  1. FILGRASTIM [Concomitant]
     Route: 065
  2. REVLIMID [Suspect]
     Dosage: 25 MILLIGRAM
     Route: 048
     Dates: start: 20091001
  3. REVLIMID [Suspect]
     Dosage: 10 MILLIGRAM
     Route: 048
     Dates: start: 20100701
  4. VELCADE [Concomitant]
     Indication: MULTIPLE MYELOMA
     Dates: start: 20110701, end: 20110901
  5. LOSARTAN POTASSIUM [Concomitant]
     Route: 065
  6. DEXAMETHASONE [Concomitant]
     Route: 065
  7. REVLIMID [Suspect]
     Indication: MULTIPLE MYELOMA
     Dosage: 10 MILLIGRAM
     Route: 048
     Dates: start: 20090901
  8. OMEPRAZOLE [Concomitant]
     Route: 065
  9. FLUOXETINE HCL [Concomitant]
     Route: 065
  10. BICARBONATE [Concomitant]
     Route: 065
     Dates: start: 20110901
  11. REVLIMID [Suspect]
     Dosage: 5 MILLIGRAM
     Route: 048
     Dates: start: 20110801, end: 20110901
  12. CALCIUM [Concomitant]
     Route: 065
     Dates: start: 20110901
  13. GLIPIZIDE [Concomitant]
     Route: 065
  14. CARVEDILOL [Concomitant]
     Route: 065

REACTIONS (6)
  - SEPSIS [None]
  - CARDIAC FAILURE CONGESTIVE [None]
  - LACTIC ACIDOSIS [None]
  - BRADYCARDIA [None]
  - BLOOD PRESSURE DECREASED [None]
  - PANCYTOPENIA [None]
